FAERS Safety Report 16426583 (Version 5)
Quarter: 2020Q2

REPORT INFORMATION
  Report Type: Spontaneous
  Country: US (occurrence: US)
  Receive Date: 20190613
  Receipt Date: 20200527
  Transmission Date: 20200713
  Serious: No
  Sender: FDA-Public Use
  Company Number: US-TEVA-2019-US-1061904

PATIENT
  Sex: Male

DRUGS (4)
  1. CLONAZEPAM ACTAVIS [Suspect]
     Active Substance: CLONAZEPAM
     Indication: MUSCLE TWITCHING
     Dosage: 4 MILLIGRAM DAILY; IN THE LAST 4-5 MONTHS
     Route: 065
     Dates: end: 2019
  2. LITHIUM. [Concomitant]
     Active Substance: LITHIUM
     Route: 065
  3. KLONOPIN [Concomitant]
     Active Substance: CLONAZEPAM
     Route: 065
  4. SEROQUEL [Concomitant]
     Active Substance: QUETIAPINE FUMARATE
     Route: 065

REACTIONS (3)
  - Product substitution issue [Unknown]
  - Therapeutic product effect decreased [Unknown]
  - Withdrawal syndrome [Recovered/Resolved]
